FAERS Safety Report 7492692-8 (Version None)
Quarter: 2011Q2

REPORT INFORMATION
  Report Type: 
  Country: None (occurrence: None)
  Receive Date: 20110519
  Receipt Date: 20110512
  Transmission Date: 20111010
  Serious: Yes (Hospitalization, Other)
  Sender: FDA-Public Use
  Company Number: CA-ABBOTT-11P-028-0722012-00

PATIENT
  Sex: Female
  Weight: 56.296 kg

DRUGS (1)
  1. HUMIRA [Suspect]
     Indication: CROHN'S DISEASE
     Route: 058
     Dates: start: 20090430, end: 20101117

REACTIONS (5)
  - LARGE INTESTINE PERFORATION [None]
  - INFECTION [None]
  - ABSCESS [None]
  - CAESAREAN SECTION [None]
  - GASTROINTESTINAL DISORDER [None]
